FAERS Safety Report 24279712 (Version 3)
Quarter: 2024Q3

REPORT INFORMATION
  Report Type: Report from Study
  Country: US (occurrence: US)
  Receive Date: 20240904
  Receipt Date: 20240927
  Transmission Date: 20241017
  Serious: Yes (Other)
  Sender: ACADIA PHARMACEUTICALS
  Company Number: US-ACADIA PHARMACEUTICALS INC.-ACA-2024-PIM-005006

PATIENT
  Age: 80 Year
  Sex: Male

DRUGS (14)
  1. NUPLAZID [Suspect]
     Active Substance: PIMAVANSERIN TARTRATE
     Indication: Parkinson^s disease psychosis
     Dosage: 34 MILLIGRAM, QD
     Route: 048
     Dates: start: 20240304
  2. AMLODIPINE [Concomitant]
     Active Substance: AMLODIPINE BESYLATE
  3. CARBIDOPA LEVODOPA [Concomitant]
     Active Substance: CARBIDOPA\LEVODOPA
  4. LACTULOSE [Concomitant]
     Active Substance: LACTULOSE
  5. CYANOCOBALAMIN [Concomitant]
     Active Substance: CYANOCOBALAMIN
  6. DONEPEZIL [Concomitant]
     Active Substance: DONEPEZIL\DONEPEZIL HYDROCHLORIDE
  7. FLUTICASONE [Concomitant]
     Active Substance: FLUTICASONE
     Route: 045
  8. LOSARTAN [Concomitant]
     Active Substance: LOSARTAN\LOSARTAN POTASSIUM
  9. MELATONIN [Concomitant]
     Active Substance: MELATONIN
  10. PANTOPRAZOLE [Concomitant]
     Active Substance: PANTOPRAZOLE
  11. POTASSIUM CHLORIDE [Concomitant]
     Active Substance: POTASSIUM CHLORIDE
  12. PRAVASTATIN [Concomitant]
     Active Substance: PRAVASTATIN
  13. QUETIAPINE [Concomitant]
     Active Substance: QUETIAPINE
  14. XDEMVY [Concomitant]
     Active Substance: LOTILANER

REACTIONS (3)
  - Skin cancer [Recovered/Resolved]
  - Syncope [Recovered/Resolved]
  - Micrographic skin surgery [Recovered/Resolved]

NARRATIVE: CASE EVENT DATE: 20240801
